FAERS Safety Report 7127945-6 (Version None)
Quarter: 2010Q4

REPORT INFORMATION
  Report Type: 
  Country: None (occurrence: None)
  Receive Date: 20101112
  Receipt Date: 20101028
  Transmission Date: 20110411
  Serious: Yes (Hospitalization)
  Sender: FDA-Public Use
  Company Number: KV200800451

PATIENT
  Age: 61 Year
  Sex: Male
  Weight: 77.6 kg

DRUGS (24)
  1. PROPAFENONE HYDROCHLORIDE [Suspect]
     Indication: ATRIAL FIBRILLATION
     Dosage: 225 MG BID, ORAL
     Route: 048
     Dates: start: 20060707, end: 20081016
  2. PROPAFENONE HYDROCHLORIDE [Suspect]
     Dosage: ORAL, 225 MG TID, ORAL
     Route: 048
     Dates: start: 20090107, end: 20090401
  3. PROPAFENONE HYDROCHLORIDE [Suspect]
     Dosage: ORAL, 225 MG TID, ORAL
     Route: 048
     Dates: start: 20060616
  4. DILTIAZEM ER (DILTIAZEM HYDROCHLORIDE) [Concomitant]
  5. DIGOXIN [Concomitant]
  6. MIRAPEX [Concomitant]
  7. CRESTOR [Concomitant]
  8. NITROQUICK (GLYCERYL TRINITRATE) [Concomitant]
  9. RANITIDINE [Concomitant]
  10. ATENOLOL [Concomitant]
  11. SULFACETAMIDE SODIUM [Concomitant]
  12. PLAVIX [Concomitant]
  13. NAPROXEN [Concomitant]
  14. OMEPRAZOLE [Concomitant]
  15. CLONAZEPAM [Concomitant]
  16. ASPIRIN [Concomitant]
  17. LIPITOR [Concomitant]
  18. TRICOR [Concomitant]
  19. BUPROPION [Concomitant]
  20. ZOFRAN [Concomitant]
  21. ACETAMINOPHEN [Concomitant]
  22. MULTIVITAMIN [Concomitant]
  23. INDUR (ISOSORBIDE MONONITRATE) [Concomitant]
  24. LANOXIN [Concomitant]

REACTIONS (48)
  - ABDOMINAL PAIN UPPER [None]
  - ALTERED STATE OF CONSCIOUSNESS [None]
  - AMNESIA [None]
  - ANGINA PECTORIS [None]
  - ANXIETY [None]
  - ARTERIOSCLEROSIS CORONARY ARTERY [None]
  - ARTHRALGIA [None]
  - ASTHENIA [None]
  - ATRIAL FIBRILLATION [None]
  - BRONCHITIS [None]
  - BRONCHOSPASM [None]
  - CARDIAC FLUTTER [None]
  - CHEST DISCOMFORT [None]
  - CHEST PAIN [None]
  - COGNITIVE DISORDER [None]
  - CONFUSIONAL STATE [None]
  - CONJUNCTIVITIS [None]
  - CONSTIPATION [None]
  - DRUG INEFFECTIVE [None]
  - DYSLIPIDAEMIA [None]
  - DYSPHAGIA [None]
  - DYSPNOEA [None]
  - EYE INFLAMMATION [None]
  - EYE IRRITATION [None]
  - FLUSHING [None]
  - GASTROOESOPHAGEAL REFLUX DISEASE [None]
  - HEADACHE [None]
  - HEART RATE IRREGULAR [None]
  - HIATUS HERNIA [None]
  - HYPERHIDROSIS [None]
  - HYPERLIPIDAEMIA [None]
  - HYPOAESTHESIA [None]
  - INSOMNIA [None]
  - JOINT SWELLING [None]
  - NASAL CONGESTION [None]
  - OEDEMA [None]
  - OESOPHAGEAL SPASM [None]
  - PALPITATIONS [None]
  - PERIPHERAL COLDNESS [None]
  - POLLAKIURIA [None]
  - PRODUCT QUALITY ISSUE [None]
  - PRODUCTIVE COUGH [None]
  - PTERYGIUM [None]
  - RESPIRATORY TRACT INFECTION [None]
  - TACHYARRHYTHMIA [None]
  - THINKING ABNORMAL [None]
  - TREMOR [None]
  - URINARY RETENTION [None]
